FAERS Safety Report 25856277 (Version 1)
Quarter: 2025Q3

REPORT INFORMATION
  Report Type: Spontaneous
  Country: US (occurrence: US)
  Receive Date: 20250928
  Receipt Date: 20250928
  Transmission Date: 20251020
  Serious: No
  Sender: TEVA
  Company Number: US-TEVA-VS-3372336

PATIENT
  Age: 13 Month
  Sex: Male

DRUGS (2)
  1. AMOXICILLIN [Suspect]
     Active Substance: AMOXICILLIN
     Indication: Ear infection
     Route: 065
     Dates: start: 20250810
  2. DUPILUMAB [Suspect]
     Active Substance: DUPILUMAB
     Indication: Dermatitis atopic
     Dosage: STRENGTH: 200MG/1.14ML
     Route: 058

REACTIONS (8)
  - Rash [Unknown]
  - Irritability [Unknown]
  - Condition aggravated [Unknown]
  - Miliaria [Unknown]
  - Upper respiratory tract infection [Unknown]
  - Rash erythematous [Unknown]
  - Skin disorder [Unknown]
  - Infection [Unknown]

NARRATIVE: CASE EVENT DATE: 20250816
